FAERS Safety Report 9565014 (Version 1)
Quarter: 2013Q3

REPORT INFORMATION
  Report Type: Report from Study
  Country: JP (occurrence: JP)
  Receive Date: 20130930
  Receipt Date: 20130930
  Transmission Date: 20140515
  Serious: Yes (Life-Threatening, Hospitalization)
  Sender: FDA-Public Use
  Company Number: JP-AMGEN-JPNCT2013068369

PATIENT
  Age: 62 Year
  Sex: Female
  Weight: 60 kg

DRUGS (31)
  1. DARBEPOETIN ALFA [Suspect]
     Indication: NEPHROGENIC ANAEMIA
     Dosage: 30 MUG, Q4WK
     Route: 058
     Dates: start: 20110721, end: 20110818
  2. DARBEPOETIN ALFA [Suspect]
     Dosage: 60 MUG, UNK
     Route: 058
     Dates: start: 20110922, end: 20111201
  3. DARBEPOETIN ALFA [Suspect]
     Dosage: 60 MUG, QD
     Route: 058
     Dates: start: 20121025, end: 20121025
  4. DARBEPOETIN ALFA [Suspect]
     Dosage: 60 MUG, QD
     Route: 058
     Dates: start: 20121227, end: 20121227
  5. DARBEPOETIN ALFA [Suspect]
     Dosage: 60 MUG, QD
     Route: 058
     Dates: start: 20130131, end: 20130131
  6. NU-LOTAN [Concomitant]
     Indication: DIABETIC NEPHROPATHY
     Dosage: UNK
     Route: 048
  7. CONIEL [Concomitant]
     Indication: HYPERTENSION
     Dosage: UNK
     Route: 048
  8. LUPRAC [Concomitant]
     Dosage: UNK
     Route: 048
  9. ANZIEF [Concomitant]
     Dosage: UNK
     Route: 048
  10. LIPITOR [Concomitant]
     Dosage: UNK
     Route: 048
  11. SHAKUYAKUKANZOTO [Concomitant]
     Indication: DIABETIC NEPHROPATHY
     Dosage: UNK
     Route: 048
  12. ARTIST [Concomitant]
     Dosage: UNK
     Route: 048
  13. IRBETAN [Concomitant]
     Dosage: UNK
     Route: 048
  14. LIVALO [Concomitant]
     Dosage: UNK
     Route: 048
  15. FLUITRAN [Concomitant]
     Dosage: UNK
     Route: 048
  16. BAYASPIRIN [Concomitant]
     Dosage: UNK
     Route: 048
  17. PLAVIX [Concomitant]
     Dosage: UNK
     Route: 048
  18. SIGMART [Concomitant]
     Dosage: UNK
     Route: 048
  19. LEVOTHYROXINE NA [Concomitant]
     Dosage: UNK
     Route: 048
  20. OMEPRAL [Concomitant]
     Dosage: UNK
     Route: 048
  21. LASIX [Concomitant]
     Indication: DIABETIC NEPHROPATHY
     Dosage: UNK
     Route: 048
  22. BLOPRESS [Concomitant]
     Dosage: UNK
     Route: 048
  23. CRESTOR [Concomitant]
     Dosage: UNK
     Route: 048
  24. AMARYL [Concomitant]
     Dosage: UNK
     Route: 048
  25. JANUVIA [Concomitant]
     Dosage: UNK
     Route: 048
  26. KINEDAK [Concomitant]
     Dosage: UNK
     Route: 048
  27. MIRCERA [Concomitant]
     Indication: DIABETIC NEPHROPATHY
     Dosage: 100 MUG, UNK
     Route: 065
     Dates: start: 20120223, end: 20120913
  28. NEXIUM [Concomitant]
     Indication: PROPHYLAXIS
     Dosage: UNK
     Route: 048
  29. SEIBULE [Concomitant]
     Dosage: UNK
     Route: 048
  30. EQUA [Concomitant]
     Dosage: UNK
     Route: 048
  31. NATRIX [Concomitant]
     Dosage: UNK
     Route: 048

REACTIONS (2)
  - Angina unstable [Recovering/Resolving]
  - Angina pectoris [Recovering/Resolving]
